FAERS Safety Report 25255952 (Version 1)
Quarter: 2025Q2

REPORT INFORMATION
  Report Type: Spontaneous
  Country: US (occurrence: US)
  Receive Date: 20250430
  Receipt Date: 20250430
  Transmission Date: 20250716
  Serious: No
  Sender: Haleon PLC
  Company Number: US-HALEON-2240266

PATIENT
  Age: 48 Year
  Sex: Female

DRUGS (1)
  1. FLONASE ALLERGY RELIEF [Suspect]
     Active Substance: FLUTICASONE PROPIONATE
     Indication: Hypersensitivity
     Dates: start: 20250426

REACTIONS (3)
  - Oropharyngeal pain [Not Recovered/Not Resolved]
  - Drug effect less than expected [Not Recovered/Not Resolved]
  - Epistaxis [Not Recovered/Not Resolved]
